FAERS Safety Report 6461016-7 (Version None)
Quarter: 2009Q4

REPORT INFORMATION
  Report Type: 
  Country: None (occurrence: None)
  Receive Date: 20091130
  Receipt Date: 20091118
  Transmission Date: 20100525
  Serious: Yes (Hospitalization)
  Sender: FDA-Public Use
  Company Number: A0826954A

PATIENT
  Age: 68 Year
  Sex: Female

DRUGS (8)
  1. PAROXETINE HCL [Suspect]
     Indication: DRUG USE FOR UNKNOWN INDICATION
     Route: 065
  2. CYMBALTA [Suspect]
     Indication: DRUG USE FOR UNKNOWN INDICATION
     Dosage: 30MG UNKNOWN
     Route: 065
     Dates: start: 20090901, end: 20090101
  3. HEART MEDICATION [Concomitant]
  4. VITAMIN [Concomitant]
  5. FISH OIL [Concomitant]
  6. OTHER MEDICATIONS [Concomitant]
  7. ACETYLSALICYLIC ACID [Concomitant]
  8. ENALAPRIL MALEATE [Concomitant]

REACTIONS (2)
  - AMNESIA [None]
  - CRYING [None]
